FAERS Safety Report 21746437 (Version 1)
Quarter: 2022Q4

REPORT INFORMATION
  Report Type: Report from Study
  Country: CA (occurrence: CA)
  Receive Date: 20221219
  Receipt Date: 20221219
  Transmission Date: 20230112
  Serious: Yes (Other)
  Sender: FDA-Public Use
  Company Number: CA-TAKEDA-2022TUS095138

PATIENT
  Age: 41 Year
  Sex: Male

DRUGS (1)
  1. VEDOLIZUMAB [Suspect]
     Active Substance: VEDOLIZUMAB
     Indication: Crohn^s disease
     Dosage: 300 MILLIGRAM
     Route: 042
     Dates: start: 20220420

REACTIONS (7)
  - Haematochezia [Unknown]
  - Abdominal pain [Unknown]
  - Anal fistula [Unknown]
  - Diarrhoea [Unknown]
  - Faeces soft [Unknown]
  - Back pain [Unknown]
  - Arthralgia [Unknown]
